FAERS Safety Report 6215893-5 (Version None)
Quarter: 2009Q2

REPORT INFORMATION
  Report Type: 
  Country: None (occurrence: None)
  Receive Date: 20090605
  Receipt Date: 20090526
  Transmission Date: 20091009
  Serious: Yes (Other)
  Sender: FDA-Public Use
  Company Number: US-ROCHE-635378

PATIENT
  Sex: Female
  Weight: 2.5 kg

DRUGS (11)
  1. MYCOPHENOLATE MOFETIL [Suspect]
     Route: 064
     Dates: end: 20071105
  2. ALDACTONE [Suspect]
     Indication: DRUG USE FOR UNKNOWN INDICATION
     Route: 064
     Dates: start: 20080201
  3. GENGRAF [Suspect]
     Dosage: STRENGTH 100 AND 125 MG, DOSING AMOUNT 100 MG AND 125 MG
     Route: 064
  4. PREDNISONE [Suspect]
     Dosage: DAILY
     Route: 064
  5. LASIX [Suspect]
     Indication: DRUG USE FOR UNKNOWN INDICATION
     Dosage: DAILY
     Route: 064
     Dates: end: 20080201
  6. NORVASC [Suspect]
     Indication: DRUG USE FOR UNKNOWN INDICATION
     Route: 064
  7. POTASSIUM CHLORIDE [Suspect]
     Indication: DRUG USE FOR UNKNOWN INDICATION
     Dosage: 50 MEQ DAILY TO 50 MEQ THRICE DAILY
     Route: 064
     Dates: start: 20080201
  8. MAGNESIUM OXIDE [Suspect]
     Indication: DRUG USE FOR UNKNOWN INDICATION
     Dosage: DAILY
     Route: 064
  9. VITAMIN AND MINERAL PRENATAL SUPPLEMENT W/ FOLIC ACID CAP [Suspect]
     Indication: DRUG USE FOR UNKNOWN INDICATION
     Dosage: DAILY
     Route: 064
  10. ASPIRIN [Suspect]
     Indication: DRUG USE FOR UNKNOWN INDICATION
     Dosage: DRUG: BABY ASPIRIN
     Route: 064
  11. BENADRYL [Suspect]
     Indication: DRUG USE FOR UNKNOWN INDICATION
     Route: 064
     Dates: start: 20080201

REACTIONS (2)
  - NORMAL NEWBORN [None]
  - PREMATURE LABOUR [None]
